FAERS Safety Report 10253200 (Version 1)
Quarter: 2014Q2

REPORT INFORMATION
  Report Type: Spontaneous
  Country: IT (occurrence: IT)
  Receive Date: 20140623
  Receipt Date: 20140623
  Transmission Date: 20141212
  Serious: Yes (Hospitalization)
  Sender: FDA-Public Use
  Company Number: IT-BRISTOL-MYERS SQUIBB COMPANY-21049051

PATIENT
  Age: 83 Year
  Sex: Male

DRUGS (3)
  1. COUMADIN TABS 5 MG [Suspect]
     Dates: start: 20130601, end: 20140604
  2. CARDICOR [Concomitant]
  3. LOSAPREX [Concomitant]

REACTIONS (1)
  - Gastric ulcer [Recovered/Resolved]
